FAERS Safety Report 8511041-7 (Version None)
Quarter: 2012Q3

REPORT INFORMATION
  Report Type: 
  Country: None (occurrence: None)
  Receive Date: 20120705
  Receipt Date: 20120619
  Transmission Date: 20120928
  Serious: Yes (Hospitalization, Other)
  Sender: FDA-Public Use
  Company Number: FK201201761

PATIENT
  Age: 28 Year
  Sex: Female

DRUGS (7)
  1. CISPLATIN [Suspect]
     Indication: OVARIAN CANCER
     Dosage: 90 MG/M2, INTRAVENOUS (NOT OTHERWISE SPECIFIED)
     Route: 042
  2. PEGFILGRASTIM (PEGFILGRASTIM) [Concomitant]
  3. ETOPOSIDE [Suspect]
     Indication: OVARIAN CANCER
     Dosage: 200 MG/M2, INTRAVENOUS (NOT OTHERWISE SPECIFIED)
     Route: 042
  4. VINBLASTINE (MANUFACTURER UNKNOWN) (VINBLASTINE) (VINBLASTINE) [Suspect]
     Indication: OVARIAN CANCER
     Dosage: 6 MG/M2, INTRAVENOUS (NOT OTHERWISE SPECIFIED)
     Route: 042
  5. BLEOMYCIN SULFATE [Suspect]
     Indication: OVARIAN CANCER
     Dosage: 15 , UNITS/M2, INTRAVENOUS (NOT OTHERWISE SPECIFIED)
     Route: 042
  6. CYCLOPHOSPHAMIDE [Suspect]
     Indication: OVARIAN CANCER
     Dosage: 1000 MG/M2, INTRAVENOUS (NOT OTHERWISE SPECIFIED)
     Route: 042
  7. DOXORUBICIN (MANUFACTURER UNKNOWN) (DOXORUBICIN) (DOXORUBICIN) [Suspect]
     Indication: OVARIAN CANCER
     Dosage: 45 MG/M2, INTRAVENOUS (NOT OTHERWISE SPECIFIED)
     Route: 042

REACTIONS (13)
  - STREPTOCOCCAL BACTERAEMIA [None]
  - NEUROPATHY PERIPHERAL [None]
  - PANCYTOPENIA [None]
  - NAUSEA [None]
  - VOMITING [None]
  - RENAL FAILURE ACUTE [None]
  - HYPOAESTHESIA [None]
  - PERIPHERAL MOTOR NEUROPATHY [None]
  - FEBRILE NEUTROPENIA [None]
  - PARAESTHESIA [None]
  - COORDINATION ABNORMAL [None]
  - GAIT DISTURBANCE [None]
  - PERIPHERAL SENSORY NEUROPATHY [None]
